FAERS Safety Report 18194723 (Version 2)
Quarter: 2020Q4

REPORT INFORMATION
  Report Type: Report from Study
  Country: CA (occurrence: CA)
  Receive Date: 20200826
  Receipt Date: 20201030
  Transmission Date: 20210113
  Serious: Yes (Other)
  Sender: FDA-Public Use
  Company Number: CA-TAIHO ONCOLOGY  INC-EU-2020-03024

PATIENT
  Age: 84 Year
  Sex: Female
  Weight: 60.3 kg

DRUGS (2)
  1. LONSURF [Suspect]
     Active Substance: TIPIRACIL HYDROCHLORIDE\TRIFLURIDINE
     Dosage: CYCLE 15-18
     Route: 048
     Dates: start: 202004
  2. LONSURF [Suspect]
     Active Substance: TIPIRACIL HYDROCHLORIDE\TRIFLURIDINE
     Indication: COLORECTAL CANCER METASTATIC
     Dosage: CYCLE 1-14
     Route: 048
     Dates: start: 20190225, end: 202003

REACTIONS (1)
  - Blood pressure systolic increased [Not Recovered/Not Resolved]

NARRATIVE: CASE EVENT DATE: 20200819
